FAERS Safety Report 16775285 (Version 2)
Quarter: 2019Q4

REPORT INFORMATION
  Report Type: Spontaneous
  Country: DE (occurrence: DE)
  Receive Date: 20190905
  Receipt Date: 20191218
  Transmission Date: 20200122
  Serious: Yes (Other)
  Sender: FDA-Public Use
  Company Number: PHHY2019DE201742

PATIENT
  Sex: Male

DRUGS (10)
  1. PIPERACILLIN. [Suspect]
     Active Substance: PIPERACILLIN SODIUM
     Indication: FOETAL EXPOSURE DURING PREGNANCY
     Dosage: MATERNAL DESCRIPTION: 3RD TRIMESTER
     Route: 064
  2. TAZOBACTAM [Suspect]
     Active Substance: TAZOBACTAM
     Indication: FOETAL EXPOSURE DURING PREGNANCY
     Dosage: MATERNAL DESCRIPTION: 3RD TRIMESTER
     Route: 064
  3. METOCLOPRAMIDE. [Suspect]
     Active Substance: METOCLOPRAMIDE
     Indication: FOETAL EXPOSURE DURING PREGNANCY
     Dosage: MATERNAL DESCRIPTION: 2ND AND 3RD TRIMESTER
     Route: 064
  4. PARACETAMOL [Suspect]
     Active Substance: ACETAMINOPHEN
     Dosage: MATERNAL DESCRIPTION: GW 17+1 UNTIL GW 18+0
     Route: 065
  5. ACICLOVIR [Suspect]
     Active Substance: ACYCLOVIR
     Indication: FOETAL EXPOSURE DURING PREGNANCY
     Dosage: MATERNAL DESCRIPTION: 2ND TRIMESTER
     Route: 064
  6. CYTARABINE. [Suspect]
     Active Substance: CYTARABINE
     Indication: FOETAL EXPOSURE DURING PREGNANCY
     Dosage: MATERNAL DESCRIPTION: 2ND AND 3RD TRIMESTER
     Route: 064
  7. PARACETAMOL [Suspect]
     Active Substance: ACETAMINOPHEN
     Indication: FOETAL EXPOSURE DURING PREGNANCY
     Dosage: MATERNAL DESCRIPTION: GW 27+4 UNTIL GW 27+6, 2ND AND 3RD TRIMESTER
     Route: 064
  8. AMPHOTERICIN B. [Suspect]
     Active Substance: AMPHOTERICIN B
     Indication: FOETAL EXPOSURE DURING PREGNANCY
     Dosage: MATERNAL DESCRIPTION: 2ND AND 3RD TRIMESTER
     Route: 065
  9. CEFUROXIME. [Suspect]
     Active Substance: CEFUROXIME
     Indication: FOETAL EXPOSURE DURING PREGNANCY
     Dosage: MATERNAL DESCRIPTION: 2ND TRIMESTER
     Route: 064
  10. DAUNORUBICIN [Suspect]
     Active Substance: DAUNORUBICIN
     Indication: FOETAL EXPOSURE DURING PREGNANCY
     Dosage: MATERNAL DESCRIPTION: 2ND AND 3RD TRIMESTER
     Route: 064

REACTIONS (5)
  - Patent ductus arteriosus [Unknown]
  - Ventricular septal defect [Unknown]
  - Foetal exposure during pregnancy [Unknown]
  - Congenital pneumonia [Unknown]
  - Premature baby [Unknown]
